FAERS Safety Report 12204905 (Version 1)
Quarter: 2016Q1

REPORT INFORMATION
  Report Type: Spontaneous
  Country: IT (occurrence: IT)
  Receive Date: 20160323
  Receipt Date: 20160323
  Transmission Date: 20160526
  Serious: Yes (Hospitalization)
  Sender: FDA-Public Use
  Company Number: IT-SYMPLMED PHARMACEUTICALS-2016SYMPLMED000171

PATIENT

DRUGS (7)
  1. PERINDOPRIL [Suspect]
     Active Substance: PERINDOPRIL
     Indication: PRODUCT USED FOR UNKNOWN INDICATION
     Dosage: 2 MG, QD
     Route: 065
  2. FUROSEMIDE. [Suspect]
     Active Substance: FUROSEMIDE
     Dosage: 25 MG, TID
     Route: 065
  3. DIGOXIN. [Suspect]
     Active Substance: DIGOXIN
     Indication: ATRIAL FIBRILLATION
     Dosage: 0.125 MG DAILY 5 DAYS/WEEK
     Route: 065
  4. SPIRONOLACTONE. [Suspect]
     Active Substance: SPIRONOLACTONE
     Indication: PRODUCT USED FOR UNKNOWN INDICATION
     Dosage: 25 MG, QD
     Route: 065
  5. THIAMAZOLE [Suspect]
     Active Substance: METHIMAZOLE
     Indication: HYPERTHYROIDISM
     Dosage: 5 MG, QD
     Route: 065
  6. WARFARIN [Suspect]
     Active Substance: WARFARIN
     Indication: ATRIAL FIBRILLATION
     Dosage: UNK
     Route: 065
  7. FUROSEMIDE. [Suspect]
     Active Substance: FUROSEMIDE
     Indication: PRODUCT USED FOR UNKNOWN INDICATION
     Dosage: 25 MG, QD
     Route: 065

REACTIONS (24)
  - Gastric haemorrhage [Unknown]
  - Melaena [Recovered/Resolved]
  - Erosive duodenitis [Unknown]
  - Hypotension [Recovered/Resolved]
  - Toxicity to various agents [Recovered/Resolved]
  - Jaundice [Unknown]
  - Vomiting [Unknown]
  - Leukocytosis [Unknown]
  - Hypochromic anaemia [Recovered/Resolved]
  - Fibrin D dimer increased [Unknown]
  - Gastric ulcer [Unknown]
  - Bradyarrhythmia [Recovered/Resolved]
  - Carbohydrate antigen 125 increased [Unknown]
  - Haematemesis [Recovered/Resolved]
  - Delirium [Recovered/Resolved]
  - Mitral valve disease [Unknown]
  - Cardiac failure [Unknown]
  - Decreased appetite [Unknown]
  - Haematuria [Unknown]
  - Hepatomegaly [Unknown]
  - International normalised ratio increased [Unknown]
  - Drug interaction [Unknown]
  - Blood creatinine increased [Unknown]
  - Hyperkalaemia [Recovered/Resolved]

NARRATIVE: CASE EVENT DATE: 2005
